FAERS Safety Report 6987752-1 (Version None)
Quarter: 2010Q3

REPORT INFORMATION
  Report Type: 
  Country: None (occurrence: None)
  Receive Date: 20100916
  Receipt Date: 20100907
  Transmission Date: 20110219
  Serious: Yes (Hospitalization)
  Sender: FDA-Public Use
  Company Number: US-ASTRAZENECA-2002UW11155

PATIENT
  Age: 71 Year
  Sex: Female
  Weight: 59 kg

DRUGS (19)
  1. NEXIUM [Suspect]
     Indication: GASTROOESOPHAGEAL REFLUX DISEASE
     Route: 048
     Dates: start: 20021113
  2. NEXIUM [Suspect]
     Route: 048
     Dates: start: 20021113
  3. NEXIUM [Suspect]
     Indication: NON-CARDIAC CHEST PAIN
     Route: 048
     Dates: start: 20021113
  4. NEXIUM [Suspect]
     Route: 048
  5. NEXIUM [Suspect]
     Route: 048
  6. NEXIUM [Suspect]
     Route: 048
  7. NEXIUM [Suspect]
     Route: 048
     Dates: start: 20040618
  8. NEXIUM [Suspect]
     Route: 048
     Dates: start: 20040618
  9. NEXIUM [Suspect]
     Route: 048
     Dates: start: 20040618
  10. NEXIUM [Suspect]
     Route: 048
     Dates: start: 20070101
  11. NEXIUM [Suspect]
     Route: 048
     Dates: start: 20070101
  12. NEXIUM [Suspect]
     Route: 048
     Dates: start: 20070101
  13. NEXIUM [Suspect]
     Route: 048
     Dates: start: 20100430, end: 20100601
  14. NEXIUM [Suspect]
     Route: 048
     Dates: start: 20100430, end: 20100601
  15. NEXIUM [Suspect]
     Route: 048
     Dates: start: 20100430, end: 20100601
  16. XANAX [Concomitant]
     Indication: ANXIETY
     Dosage: 1/2 OF 0.25 MG AS REQUIRED
  17. HYOSCYAMINE [Concomitant]
     Indication: IRRITABLE BOWEL SYNDROME
  18. HYOSCYAMINE [Concomitant]
     Indication: NON-CARDIAC CHEST PAIN
  19. ZANTAC [Concomitant]

REACTIONS (28)
  - ABDOMINAL DISCOMFORT [None]
  - ABDOMINAL PAIN [None]
  - BLEPHARITIS [None]
  - BURNING SENSATION [None]
  - CHEST DISCOMFORT [None]
  - CHEST PAIN [None]
  - CHOKING [None]
  - COLITIS [None]
  - COUGH [None]
  - DIARRHOEA [None]
  - DRUG INEFFECTIVE [None]
  - DRY EYE [None]
  - DYSPEPSIA [None]
  - DYSPHAGIA [None]
  - DYSPNOEA [None]
  - GASTROOESOPHAGEAL REFLUX DISEASE [None]
  - HEADACHE [None]
  - HYPERHIDROSIS [None]
  - ILEITIS [None]
  - INSOMNIA [None]
  - MOUTH HAEMORRHAGE [None]
  - MUSCLE SPASMS [None]
  - MUSCULOSKELETAL PAIN [None]
  - NON-CARDIAC CHEST PAIN [None]
  - PAIN IN EXTREMITY [None]
  - PLEURAL EFFUSION [None]
  - VISION BLURRED [None]
  - WEIGHT DECREASED [None]
